FAERS Safety Report 14184754 (Version 3)
Quarter: 2017Q4

REPORT INFORMATION
  Report Type: Report from Study
  Country: None (occurrence: RO)
  Receive Date: 20171114
  Receipt Date: 20171215
  Transmission Date: 20180321
  Serious: Yes (Hospitalization, Other)
  Sender: FDA-Public Use
  Company Number: RO-ABBVIE-17S-135-2157357-00

PATIENT
  Age: 61 Year
  Sex: Female
  Weight: 80 kg

DRUGS (5)
  1. EXVIERA [Suspect]
     Active Substance: DASABUVIR
     Indication: HEPATIC CIRRHOSIS
  2. BISOGAMMA [Concomitant]
     Active Substance: BISOPROLOL FUMARATE
     Indication: ATRIAL FIBRILLATION
     Route: 065
  3. VIEKIRAX [Suspect]
     Active Substance: OMBITASVIR\PARITAPREVIR\RITONAVIR
     Indication: HEPATIC CIRRHOSIS
  4. EXVIERA [Suspect]
     Active Substance: DASABUVIR
     Indication: HEPATITIS C
     Route: 048
     Dates: start: 20170819, end: 20171108
  5. VIEKIRAX [Suspect]
     Active Substance: OMBITASVIR\PARITAPREVIR\RITONAVIR
     Indication: HEPATITIS C
     Route: 048
     Dates: start: 20170819, end: 20171108

REACTIONS (13)
  - Rectal haemorrhage [Recovered/Resolved]
  - Musculoskeletal pain [Not Recovered/Not Resolved]
  - Blood pressure decreased [Recovered/Resolved]
  - Heart rate increased [Recovered/Resolved]
  - Upper gastrointestinal haemorrhage [Recovered/Resolved]
  - Asthenia [Recovering/Resolving]
  - Atrial fibrillation [Recovered/Resolved]
  - Gastric polyps [Recovering/Resolving]
  - Synovial cyst [Recovering/Resolving]
  - Slow speech [Recovering/Resolving]
  - Iron deficiency anaemia [Recovered/Resolved]
  - Hepatic failure [Recovering/Resolving]
  - Melaena [Recovered/Resolved]

NARRATIVE: CASE EVENT DATE: 20170819
